FAERS Safety Report 5304820-0 (Version None)
Quarter: 2007Q2

REPORT INFORMATION
  Report Type: 
  Country: None (occurrence: None)
  Receive Date: 20070423
  Receipt Date: 20070418
  Transmission Date: 20071010
  Serious: Yes (Death)
  Sender: FDA-Public Use
  Company Number: DK-SANOFI-SYNTHELABO-F01200700515

PATIENT
  Age: 58 Year
  Sex: Male

DRUGS (22)
  1. KVALMIBEN [Concomitant]
     Indication: VOMITING
     Route: 048
     Dates: start: 20070109, end: 20070111
  2. KVALMIBEN [Concomitant]
     Route: 048
     Dates: start: 20070123, end: 20070125
  3. KVALMIBEN [Concomitant]
     Route: 048
     Dates: start: 20070206, end: 20070208
  4. KVALMIBEN [Concomitant]
     Route: 048
     Dates: start: 20070220, end: 20070222
  5. KVALMIBEN [Concomitant]
     Route: 048
     Dates: start: 20070209, end: 20070211
  6. IMOZOP [Concomitant]
     Indication: INSOMNIA
     Route: 048
     Dates: start: 20070306
  7. MORFIN [Concomitant]
     Indication: PAIN
     Route: 048
     Dates: start: 20070307
  8. CONTALGIN [Concomitant]
     Indication: PAIN
     Route: 048
     Dates: start: 20070307
  9. PREDNISOLONE [Concomitant]
     Route: 048
     Dates: start: 20070228
  10. PICOLAN [Concomitant]
     Indication: CONSTIPATION
     Route: 048
     Dates: start: 20070307
  11. PRIMPERAN INJ [Concomitant]
     Indication: NAUSEA
     Route: 048
     Dates: start: 20070228
  12. LANSOPRAZOLE [Concomitant]
     Route: 048
     Dates: start: 20070228, end: 20070306
  13. LANSOPRAZOLE [Concomitant]
     Dosage: 30 MG
     Route: 048
     Dates: start: 20070306
  14. VITAMIN B [Concomitant]
     Route: 048
  15. HEXALID [Concomitant]
     Route: 048
  16. SERETIDE [Concomitant]
     Indication: ASTHMA
     Dosage: 25/125  2/DAY
     Route: 055
  17. VENTOLIN [Concomitant]
     Indication: ASTHMA
     Route: 055
  18. LANSOPRAZOLE [Concomitant]
     Indication: GASTROOESOPHAGEAL REFLUX DISEASE
     Route: 048
  19. PINEX [Concomitant]
     Indication: PAIN
     Route: 048
  20. XELODA [Suspect]
     Dosage: 4000 MG
     Dates: start: 20070323, end: 20070330
  21. GEMZAR [Suspect]
     Dosage: 2000 MG
     Route: 041
     Dates: start: 20070323, end: 20070323
  22. ELOXATIN [Suspect]
     Indication: BILE DUCT CANCER
     Dosage: 120 MG
     Route: 041
     Dates: start: 20070323, end: 20070323

REACTIONS (1)
  - DEATH [None]
